FAERS Safety Report 9958713 (Version 1)
Quarter: 2014Q1

REPORT INFORMATION
  Report Type: Spontaneous
  Country: US (occurrence: US)
  Receive Date: 20140305
  Receipt Date: 20140305
  Transmission Date: 20141002
  Serious: No
  Sender: FDA-Public Use
  Company Number: US-ABBVIE-13P-163-1101494-00

PATIENT
  Age: 38 Year
  Sex: Female

DRUGS (2)
  1. HUMIRA [Suspect]
     Indication: PSORIASIS
     Dates: start: 201304, end: 201304
  2. HUMIRA [Suspect]
     Dates: end: 20130520

REACTIONS (2)
  - Hypoaesthesia [Unknown]
  - Musculoskeletal stiffness [Unknown]
